FAERS Safety Report 16967863 (Version 2)
Quarter: 2019Q4

REPORT INFORMATION
  Report Type: Report from Study
  Country: US (occurrence: US)
  Receive Date: 20191028
  Receipt Date: 20191108
  Transmission Date: 20200122
  Serious: Yes (Death)
  Sender: FDA-Public Use
  Company Number: US-OTSUKA-2019_036469

PATIENT
  Sex: Male

DRUGS (1)
  1. DEXTROMETHORPHAN/QUINIDINE [Suspect]
     Active Substance: DEXTROMETHORPHAN HYDROBROMIDE\QUINIDINE SULFATE
     Indication: AMYOTROPHIC LATERAL SCLEROSIS
     Dosage: 1 DF(20/10MG), BID(EVERY 12 HOURS)
     Route: 065
     Dates: start: 20180416

REACTIONS (2)
  - Disease progression [Fatal]
  - Product use in unapproved indication [Unknown]
